FAERS Safety Report 24567230 (Version 2)
Quarter: 2024Q4

REPORT INFORMATION
  Report Type: Spontaneous
  Country: JP (occurrence: None)
  Receive Date: 20241030
  Receipt Date: 20241216
  Transmission Date: 20250114
  Serious: Yes (Death, Other)
  Sender: ALEXION PHARMACEUTICALS
  Company Number: JP-ASTRAZENECA-240111120_064320_P_1

PATIENT
  Age: 92 Year

DRUGS (4)
  1. ANDEXXA [Suspect]
     Active Substance: ANDEXANET ALFA
     Indication: Cerebral haemorrhage
     Dosage: 880 MILLIGRAM
  2. ANDEXXA [Suspect]
     Active Substance: ANDEXANET ALFA
     Dosage: 880 MILLIGRAM
     Route: 042
  3. ANDEXXA [Suspect]
     Active Substance: ANDEXANET ALFA
     Dosage: 880 MILLIGRAM
  4. ANDEXXA [Suspect]
     Active Substance: ANDEXANET ALFA
     Dosage: 880 MILLIGRAM
     Route: 042

REACTIONS (1)
  - Subdural haematoma [Fatal]
